FAERS Safety Report 4893763-2 (Version None)
Quarter: 2006Q1

REPORT INFORMATION
  Report Type: 
  Country: None (occurrence: None)
  Receive Date: 20060127
  Receipt Date: 20051025
  Transmission Date: 20060701
  Serious: Yes (Hospitalization)
  Sender: FDA-Public Use
  Company Number: GBWYE087825OCT05

PATIENT
  Sex: Female
  Weight: 54 kg

DRUGS (5)
  1. ENBREL [Suspect]
     Indication: RHEUMATOID ARTHRITIS
     Route: 058
     Dates: start: 20050309
  2. CARBAZOCHROME [Concomitant]
  3. DICLOFENAC [Concomitant]
  4. LOSARTAN [Concomitant]
  5. ZOPICLONE [Concomitant]
     Indication: RHEUMATOID ARTHRITIS

REACTIONS (2)
  - FEMORAL NECK FRACTURE [None]
  - WOUND SECRETION [None]
